FAERS Safety Report 4903603-0 (Version None)
Quarter: 2006Q1

REPORT INFORMATION
  Report Type: 
  Country: None (occurrence: None)
  Receive Date: 20060203
  Receipt Date: 20060124
  Transmission Date: 20060701
  Serious: Yes (Other)
  Sender: FDA-Public Use
  Company Number: BR-2006-001524

PATIENT
  Age: 38 Year
  Sex: Female

DRUGS (1)
  1. MIRENA [Suspect]
     Indication: CONTRACEPTION
     Dosage: 20 ?G /DAY, CONT, INTRA-UTERINE
     Route: 015
     Dates: start: 20050501

REACTIONS (5)
  - ENDOCRINE DISORDER [None]
  - HEPATOMEGALY [None]
  - LIVER DISORDER [None]
  - PROGESTERONE INCREASED [None]
  - WEIGHT INCREASED [None]
